FAERS Safety Report 13245817 (Version 1)
Quarter: 2017Q1

REPORT INFORMATION
  Report Type: Spontaneous
  Country: CN (occurrence: CN)
  Receive Date: 20170217
  Receipt Date: 20170217
  Transmission Date: 20170428
  Serious: Yes (Other)
  Sender: FDA-Public Use
  Company Number: CN-ROCHE-1894302

PATIENT
  Age: 41 Year
  Sex: Male
  Weight: 64.5 kg

DRUGS (1)
  1. ROCEPHIN [Suspect]
     Active Substance: CEFTRIAXONE SODIUM
     Indication: URINARY TRACT INFECTION
     Route: 030
     Dates: start: 20160930, end: 20160930

REACTIONS (2)
  - Muscle twitching [Recovered/Resolved]
  - Hyperhidrosis [Recovered/Resolved]

NARRATIVE: CASE EVENT DATE: 20160930
